FAERS Safety Report 9300915 (Version 1)
Quarter: 2013Q2

REPORT INFORMATION
  Report Type: Spontaneous
  Country: US (occurrence: None)
  Receive Date: 20130520
  Receipt Date: 20130520
  Transmission Date: 20140414
  Serious: No
  Sender: FDA-Public Use
  Company Number: None

PATIENT
  Age: 11 Year
  Sex: Female
  Weight: 33.1 kg

DRUGS (1)
  1. ETOPOSIDE [Suspect]
     Indication: NEPHROBLASTOMA
     Dosage: 110 Q20H IV BOLUS
     Dates: start: 20130416, end: 20130420

REACTIONS (2)
  - Infusion related reaction [None]
  - Respiratory disorder [None]
